FAERS Safety Report 10264160 (Version 1)
Quarter: 2014Q2

REPORT INFORMATION
  Report Type: Spontaneous
  Country: US (occurrence: None)
  Receive Date: 20140623
  Receipt Date: 20140623
  Transmission Date: 20141212
  Serious: Yes (Other)
  Sender: FDA-Public Use
  Company Number: None

PATIENT
  Age: 45 Year
  Sex: Female
  Weight: 92.99 kg

DRUGS (1)
  1. METHYLPHENIDATE [Suspect]
     Indication: NEOPLASM MALIGNANT
     Dosage: 2 PILLS  ONCE DAILY TAKEN BY MOUTH
     Route: 048
     Dates: start: 20140617, end: 20140619

REACTIONS (3)
  - Anxiety [None]
  - Anger [None]
  - Product substitution issue [None]
